FAERS Safety Report 6062362-1 (Version None)
Quarter: 2009Q1

REPORT INFORMATION
  Report Type: 
  Country: None (occurrence: None)
  Receive Date: 20090202
  Receipt Date: 20090202
  Transmission Date: 20090719
  Serious: Yes (Other)
  Sender: FDA-Public Use
  Company Number: None

PATIENT
  Sex: Female
  Weight: 68.0396 kg

DRUGS (1)
  1. MIRENA [Suspect]
     Indication: CONTRACEPTION
     Dosage: INTRA-UTERINE
     Route: 015
     Dates: start: 20080617, end: 20090130

REACTIONS (15)
  - ANGER [None]
  - ANXIETY [None]
  - ASTHENIA [None]
  - COMMUNICATION DISORDER [None]
  - FEAR [None]
  - FEELING ABNORMAL [None]
  - HOT FLUSH [None]
  - HYPERTENSION [None]
  - INSOMNIA [None]
  - MENOPAUSAL SYMPTOMS [None]
  - MENTAL DISORDER [None]
  - MIGRAINE [None]
  - MOOD SWINGS [None]
  - PALPITATIONS [None]
  - WEIGHT INCREASED [None]
